FAERS Safety Report 4465620-7 (Version None)
Quarter: 2004Q4

REPORT INFORMATION
  Report Type: 
  Country: None (occurrence: None)
  Receive Date: 20041004
  Receipt Date: 20040901
  Transmission Date: 20050328
  Serious: Yes (Hospitalization)
  Sender: FDA-Public Use
  Company Number: PHNU2004DE03122

PATIENT
  Age: 44 Year
  Sex: Male
  Weight: 76 kg

DRUGS (3)
  1. DIOVAN [Suspect]
     Indication: HYPERTENSION
     Dosage: 1 DF, QD
     Route: 048
     Dates: start: 20040818, end: 20040916
  2. BETA RECEPTOR STIMULANTS [Concomitant]
     Dosage: INCREASING DOSAGE
  3. ASCOTOP [Concomitant]
     Dosage: UNK, PRN

REACTIONS (4)
  - ASTHMA [None]
  - DYSPNOEA [None]
  - HYPERTENSIVE CRISIS [None]
  - TACHYCARDIA [None]
